FAERS Safety Report 4323425-1 (Version None)
Quarter: 2004Q1

REPORT INFORMATION
  Report Type: 
  Country: None (occurrence: None)
  Receive Date: 20040325
  Receipt Date: 20011025
  Transmission Date: 20041129
  Serious: Yes (Hospitalization)
  Sender: FDA-Public Use
  Company Number: WAES 01104514

PATIENT
  Age: 68 Year
  Sex: Male
  Weight: 64 kg

DRUGS (6)
  1. ENBREL [Concomitant]
     Indication: ARTHRITIS
     Dates: start: 20010101, end: 20010101
  2. ENBREL [Concomitant]
     Indication: PSORIASIS
     Dates: start: 20010101, end: 20010101
  3. VIOXX [Suspect]
     Indication: ARTHRITIS
     Route: 048
     Dates: end: 20001201
  4. VIOXX [Suspect]
     Route: 048
     Dates: start: 19990914
  5. AZULFIDINE [Concomitant]
     Indication: PSORIASIS
  6. TRAZODONE HYDROCHLORIDE [Concomitant]
     Indication: INSOMNIA

REACTIONS (8)
  - BLOOD CHOLESTEROL INCREASED [None]
  - BLOOD PRESSURE INCREASED [None]
  - CEREBROVASCULAR ACCIDENT [None]
  - CHEST PAIN [None]
  - CORONARY ARTERY STENOSIS [None]
  - GASTROOESOPHAGEAL REFLUX DISEASE [None]
  - HYPERTENSION [None]
  - MYOCARDIAL INFARCTION [None]
